FAERS Safety Report 4420089-3 (Version None)
Quarter: 2004Q2

REPORT INFORMATION
  Report Type: 
  Country: None (occurrence: None)
  Receive Date: 20040622
  Receipt Date: 20030605
  Transmission Date: 20050107
  Serious: Yes (Life-Threatening, Hospitalization)
  Sender: FDA-Public Use
  Company Number: 339658

PATIENT
  Age: 61 Year
  Sex: Female

DRUGS (2)
  1. XELODA [Suspect]
     Indication: PANCREATIC CARCINOMA
     Dosage: ORAL
     Route: 048
  2. COUMADIN [Suspect]
     Indication: PULMONARY EMBOLISM
     Dosage: ORAL
     Route: 048

REACTIONS (2)
  - DRUG INTERACTION [None]
  - EPISTAXIS [None]
